FAERS Safety Report 4265674-7 (Version None)
Quarter: 2004Q1

REPORT INFORMATION
  Report Type: 
  Country: None (occurrence: None)
  Receive Date: 20040107
  Receipt Date: 20020423
  Transmission Date: 20041129
  Serious: Yes (Life-Threatening)
  Sender: FDA-Public Use
  Company Number: IT-GLAXOSMITHKLINE-B0316906A

PATIENT
  Age: 79 Year
  Sex: Female

DRUGS (3)
  1. PAROXETINE HCL [Suspect]
     Indication: DEPRESSION
     Dosage: 20MG PER DAY
     Route: 048
     Dates: start: 20020417, end: 20020417
  2. AMANTADINE HCL [Concomitant]
     Indication: PARKINSONISM
     Route: 048
  3. LEVODOPA [Concomitant]
     Indication: PARKINSONISM
     Route: 048

REACTIONS (2)
  - COMA [None]
  - DYSTONIA [None]
